FAERS Safety Report 16772362 (Version 1)
Quarter: 2019Q3

REPORT INFORMATION
  Report Type: Report from Study
  Country: US (occurrence: US)
  Receive Date: 20190904
  Receipt Date: 20190904
  Transmission Date: 20191005
  Serious: Yes (Life-Threatening, Other)
  Sender: FDA-Public Use
  Company Number: US-ROCHE-2358945

PATIENT
  Age: 61 Year
  Sex: Female
  Weight: 123.94 kg

DRUGS (3)
  1. OXYGEN. [Concomitant]
     Active Substance: OXYGEN
     Dosage: ONGOING: YES
     Route: 065
  2. OCREVUS [Suspect]
     Active Substance: OCRELIZUMAB
     Indication: RELAPSING MULTIPLE SCLEROSIS
  3. OCREVUS [Suspect]
     Active Substance: OCRELIZUMAB
     Indication: MULTIPLE SCLEROSIS
     Dosage: HALF DOSES?DATE OF TREATMENT: 25/FEB/2019
     Route: 065
     Dates: start: 20190311

REACTIONS (12)
  - Diastolic dysfunction [Unknown]
  - Cerebral ischaemia [Not Recovered/Not Resolved]
  - Cerebral haemorrhage [Recovered/Resolved]
  - Yersinia meningitis [Unknown]
  - Speech disorder [Not Recovered/Not Resolved]
  - Loss of consciousness [Recovered/Resolved]
  - Anaemia [Unknown]
  - Fluid retention [Unknown]
  - Weight decreased [Unknown]
  - Ischaemia [Recovered/Resolved]
  - Dry mouth [Not Recovered/Not Resolved]
  - Amnesia [Not Recovered/Not Resolved]

NARRATIVE: CASE EVENT DATE: 201907
